FAERS Safety Report 5291410-1 (Version None)
Quarter: 2007Q2

REPORT INFORMATION
  Report Type: 
  Country: None (occurrence: None)
  Receive Date: 20070402
  Receipt Date: 20070316
  Transmission Date: 20071010
  Serious: Yes (Life-Threatening, Hospitalization)
  Sender: FDA-Public Use
  Company Number: DSA_29474_2007

PATIENT
  Age: 37 Year
  Sex: Female

DRUGS (2)
  1. LORAZEPAM [Suspect]
     Dosage: 50 MG ONCE PO
     Route: 048
     Dates: start: 20070225, end: 20070225
  2. TRIMIPRAMINE MALEATE [Suspect]
     Dosage: DF ONCE PO
     Route: 048
     Dates: start: 20070225, end: 20070225

REACTIONS (6)
  - BUNDLE BRANCH BLOCK RIGHT [None]
  - COMA [None]
  - CONVULSION [None]
  - INTENTIONAL OVERDOSE [None]
  - SUICIDE ATTEMPT [None]
  - TACHYCARDIA [None]
